FAERS Safety Report 6640854-1 (Version None)
Quarter: 2010Q1

REPORT INFORMATION
  Report Type: 
  Country: None (occurrence: None)
  Receive Date: 20100318
  Receipt Date: 20100305
  Transmission Date: 20100710
  Serious: Yes (Hospitalization)
  Sender: FDA-Public Use
  Company Number: GB-AMGEN-US400018

PATIENT
  Sex: Female

DRUGS (1)
  1. ENBREL [Suspect]
     Indication: DRUG USE FOR UNKNOWN INDICATION
     Dosage: 50 MG (FREQUENCY UNSPECIFIED)
     Dates: end: 20100215

REACTIONS (3)
  - COUGH [None]
  - OROPHARYNGEAL PAIN [None]
  - WHEEZING [None]
